FAERS Safety Report 5207894-0 (Version None)
Quarter: 2007Q1

REPORT INFORMATION
  Report Type: 
  Country: None (occurrence: None)
  Receive Date: 20070112
  Receipt Date: 20061116
  Transmission Date: 20070707
  Serious: Yes (Other)
  Sender: FDA-Public Use
  Company Number: US-PFIZER INC-2006142204

PATIENT
  Sex: Female
  Weight: 68 kg

DRUGS (5)
  1. CELEBREX [Suspect]
     Indication: PAIN
  2. CELEBREX [Interacting]
     Indication: SWELLING
  3. PERCOCET [Interacting]
     Indication: PAIN
  4. ALCOHOL [Interacting]
  5. ESTROGENS [Concomitant]

REACTIONS (4)
  - BALANCE DISORDER [None]
  - DIZZINESS POSTURAL [None]
  - DRUG INTERACTION [None]
  - VERTIGO [None]
